FAERS Safety Report 14338161 (Version 1)
Quarter: 2017Q4

REPORT INFORMATION
  Report Type: Spontaneous
  Country: CN (occurrence: CN)
  Receive Date: 20171229
  Receipt Date: 20171229
  Transmission Date: 20180321
  Serious: Yes (Other)
  Sender: FDA-Public Use
  Company Number: CN-JNJFOC-20171225340

PATIENT
  Age: 59 Year
  Sex: Male

DRUGS (2)
  1. REMICADE [Suspect]
     Active Substance: INFLIXIMAB
     Indication: COLITIS ULCERATIVE
     Route: 042
  2. REMICADE [Suspect]
     Active Substance: INFLIXIMAB
     Indication: COLITIS ULCERATIVE
     Route: 042

REACTIONS (6)
  - Frequent bowel movements [Unknown]
  - Red blood cell sedimentation rate increased [Unknown]
  - Haematochezia [Unknown]
  - Platelet count increased [Unknown]
  - C-reactive protein increased [Unknown]
  - White blood cells stool [Unknown]
